FAERS Safety Report 16024675 (Version 1)
Quarter: 2019Q1

REPORT INFORMATION
  Report Type: Spontaneous
  Country: US (occurrence: US)
  Receive Date: 20190301
  Receipt Date: 20190301
  Transmission Date: 20190418
  Serious: Yes (Hospitalization)
  Sender: FDA-Public Use
  Company Number: US-ANIPHARMA-2019-US-003924

PATIENT
  Sex: Male

DRUGS (1)
  1. DIPHENOXYLATE HYDROCHLORIDE + ATROPINE SULFATE (NON-SPECIFIC) [Suspect]
     Active Substance: ATROPINE SULFATE\DIPHENOXYLATE HYDROCHLORIDE
     Indication: DIARRHOEA

REACTIONS (1)
  - Decubitus ulcer [Unknown]
